FAERS Safety Report 25865930 (Version 1)
Quarter: 2025Q3

REPORT INFORMATION
  Report Type: Report from Study
  Country: US (occurrence: US)
  Receive Date: 20250930
  Receipt Date: 20250930
  Transmission Date: 20251020
  Serious: Yes (Hospitalization)
  Sender: BAUSCH AND LOMB
  Company Number: US-BAUSCH-BH-2025-017332

PATIENT
  Age: 65 Year
  Sex: Female

DRUGS (1)
  1. XIFAXAN [Suspect]
     Active Substance: RIFAXIMIN
     Indication: Product used for unknown indication
     Route: 048
     Dates: end: 20250915

REACTIONS (5)
  - Loss of consciousness [Unknown]
  - Ammonia increased [Unknown]
  - Confusional state [Unknown]
  - Therapy interrupted [Unknown]
  - Intentional underdose [Unknown]

NARRATIVE: CASE EVENT DATE: 20250101
